FAERS Safety Report 7468200-4 (Version None)
Quarter: 2011Q2

REPORT INFORMATION
  Report Type: 
  Country: None (occurrence: None)
  Receive Date: 20110509
  Receipt Date: 20100728
  Transmission Date: 20111010
  Serious: No
  Sender: FDA-Public Use
  Company Number: US-SANOFI-AVENTIS-2010SA014730

PATIENT
  Age: 54 Year
  Sex: Female

DRUGS (2)
  1. LANTUS [Suspect]
     Route: 058
     Dates: start: 20100201
  2. APIDRA [Suspect]
     Dosage: 3U 5U 5U WITH EACH MEAL
     Route: 058
     Dates: start: 20100201

REACTIONS (5)
  - HEADACHE [None]
  - BLOOD GLUCOSE INCREASED [None]
  - PYREXIA [None]
  - MALAISE [None]
  - NAUSEA [None]
